FAERS Safety Report 6372031-6 (Version None)
Quarter: 2009Q3

REPORT INFORMATION
  Report Type: 
  Country: None (occurrence: None)
  Receive Date: 20090917
  Receipt Date: 20090904
  Transmission Date: 20100115
  Serious: Yes (Death)
  Sender: FDA-Public Use
  Company Number: ADR19242009

PATIENT
  Sex: Male

DRUGS (7)
  1. SALBUTAMOL SULPHATE (MFR: UNKNOWN) [Suspect]
     Dosage: 100 MCG;INHALATION USE
     Route: 055
  2. SPIRIVA 18 MCG INHALATION POWDER, HARD CAPSULE 18.0 MCG [Concomitant]
  3. BENDROFLUAZIDE 2.5 MG [Concomitant]
  4. BECLOMETHASONE 100 MCG [Concomitant]
  5. CALCICHEW D3 [Concomitant]
  6. DOTHIEPIN 25 MG [Concomitant]
  7. SALMETEROL 25 MG [Concomitant]

REACTIONS (3)
  - CHRONIC OBSTRUCTIVE PULMONARY DISEASE [None]
  - LOWER RESPIRATORY TRACT INFECTION [None]
  - PULMONARY TUBERCULOSIS [None]
